FAERS Safety Report 14753083 (Version 1)
Quarter: 2018Q2

REPORT INFORMATION
  Report Type: Spontaneous
  Country: US (occurrence: US)
  Receive Date: 20180412
  Receipt Date: 20180412
  Transmission Date: 20180711
  Serious: No
  Sender: FDA-Public Use
  Company Number: US-FERRINGPH-2017FE04580

PATIENT
  Sex: Male

DRUGS (2)
  1. FIRMAGON [Suspect]
     Active Substance: DEGARELIX ACETATE
     Indication: PROSTATE CANCER
     Dosage: UNK UNK, MONTHLY
     Route: 065
     Dates: end: 201607
  2. XTANDI [Suspect]
     Active Substance: ENZALUTAMIDE
     Indication: PROSTATE CANCER METASTATIC
     Dosage: 80 MG, 2 TIMES DAILY
     Route: 065
     Dates: start: 2013, end: 201607

REACTIONS (3)
  - Fatigue [Unknown]
  - Injection site pain [Unknown]
  - Injection site induration [Unknown]
